FAERS Safety Report 23052039 (Version 2)
Quarter: 2023Q4

REPORT INFORMATION
  Report Type: Report from Study
  Country: JP (occurrence: JP)
  Receive Date: 20231010
  Receipt Date: 20231016
  Transmission Date: 20240110
  Serious: Yes (Other)
  Sender: FDA-Public Use
  Company Number: JP-ARGENX-2023-ARGX-JP003348

PATIENT
  Age: 50 Year
  Sex: Male
  Weight: 116 kg

DRUGS (4)
  1. VYVGART [Suspect]
     Active Substance: EFGARTIGIMOD ALFA-FCAB
     Indication: Myasthenia gravis
     Dosage: 1150 MG
     Route: 041
     Dates: start: 20220810, end: 20220831
  2. VYVGART [Suspect]
     Active Substance: EFGARTIGIMOD ALFA-FCAB
     Dosage: 1200 MG
     Route: 041
     Dates: start: 20230510, end: 20230531
  3. PREDNISOLONE [Suspect]
     Active Substance: PREDNISOLONE
     Indication: Myasthenia gravis
     Dosage: 20 MG
     Route: 048
     Dates: start: 20220710
  4. PROGRAF [Concomitant]
     Active Substance: TACROLIMUS
     Indication: Myasthenia gravis
     Dosage: 3 DF
     Route: 048
     Dates: start: 20220710

REACTIONS (2)
  - Deep vein thrombosis [Recovering/Resolving]
  - Symptom recurrence [Recovering/Resolving]

NARRATIVE: CASE EVENT DATE: 20230301
